FAERS Safety Report 11625133 (Version 1)
Quarter: 2015Q4

REPORT INFORMATION
  Report Type: Spontaneous
  Country: US (occurrence: US)
  Receive Date: 20151013
  Receipt Date: 20151013
  Transmission Date: 20160304
  Serious: No
  Sender: FDA-Public Use
  Company Number: US-UNICHEM LABORATORIES LIMITED-UCM201409-000166

PATIENT
  Age: 24 Year
  Sex: Male
  Weight: 72.5 kg

DRUGS (4)
  1. CLONIDINE HCL 0.2 MG TABLET [Suspect]
     Active Substance: CLONIDINE HYDROCHLORIDE
     Indication: SLEEP DISORDER
  2. CLONIDINE HCL 0.2 MG TABLET [Suspect]
     Active Substance: CLONIDINE HYDROCHLORIDE
     Indication: AUTISM
  3. BUSPAR [Concomitant]
     Active Substance: BUSPIRONE HYDROCHLORIDE
  4. RISPERIDONE. [Concomitant]
     Active Substance: RISPERIDONE

REACTIONS (2)
  - Off label use [Unknown]
  - Diarrhoea [Not Recovered/Not Resolved]

NARRATIVE: CASE EVENT DATE: 20140830
